FAERS Safety Report 10151942 (Version 1)
Quarter: 2014Q2

REPORT INFORMATION
  Report Type: Spontaneous
  Country: US (occurrence: None)
  Receive Date: 20140501
  Receipt Date: 20140501
  Transmission Date: 20141212
  Serious: Yes (Other)
  Sender: FDA-Public Use
  Company Number: KAD201404-000440

PATIENT
  Age: 55 Year
  Sex: Male

DRUGS (2)
  1. ANASTROZOLE (ANASTROZOLE) [Suspect]
     Indication: CARDIOVASCULAR EVENT PROPHYLAXIS
  2. ANDROGEL [Suspect]
     Indication: SEXUAL DYSFUNCTION

REACTIONS (2)
  - Osteonecrosis of jaw [None]
  - Hypercoagulation [None]
